FAERS Safety Report 7553705-8 (Version None)
Quarter: 2011Q2

REPORT INFORMATION
  Report Type: 
  Country: None (occurrence: None)
  Receive Date: 20110617
  Receipt Date: 20110609
  Transmission Date: 20111010
  Serious: Yes (Hospitalization)
  Sender: FDA-Public Use
  Company Number: FR-NOVOPROD-329725

PATIENT
  Age: 61 Year
  Sex: Male

DRUGS (7)
  1. REPAGLINIDE [Suspect]
     Indication: PRODUCT USED FOR UNKNOWN INDICATION
     Dosage: UNK
     Route: 065
  2. KARDEGIC [Concomitant]
  3. INDAPAMIDE [Concomitant]
  4. PENTOXIFYLLINE [Suspect]
     Indication: PRODUCT USED FOR UNKNOWN INDICATION
     Dosage: 20 MG, QD
  5. AMLODIPINE [Concomitant]
     Indication: ANGINA PECTORIS
  6. NEXIUM [Concomitant]
  7. ATORVASTATIN [Concomitant]

REACTIONS (1)
  - CYTOLYTIC HEPATITIS [None]
